FAERS Safety Report 7122351-2 (Version None)
Quarter: 2010Q4

REPORT INFORMATION
  Report Type: 
  Country: None (occurrence: None)
  Receive Date: 20101124
  Receipt Date: 20101117
  Transmission Date: 20110411
  Serious: Yes (Hospitalization, Other)
  Sender: FDA-Public Use
  Company Number: PHHO2010PH17295

PATIENT
  Sex: Male
  Weight: 60 kg

DRUGS (5)
  1. ENALAPRIL MALEATE [Suspect]
     Dosage: NO TREATMENT
  2. BLINDED LCZ696 LCZ+TAB+CF [Suspect]
     Dosage: NO TREATMENT
  3. BLINDED NO TREATMENT RECEIVED NOMED [Suspect]
     Dosage: NO TREATMENT
  4. LCZ696 [Suspect]
     Indication: CARDIAC FAILURE CHRONIC
     Dosage: 100 MG, BID
     Dates: start: 20101109, end: 20101113
  5. LCZ696 [Suspect]
     Dosage: 100 MG, BID
     Dates: start: 20101114

REACTIONS (8)
  - ANGINA PECTORIS [None]
  - ATRIAL FIBRILLATION [None]
  - BUNDLE BRANCH BLOCK RIGHT [None]
  - CHEST DISCOMFORT [None]
  - CONCOMITANT DISEASE PROGRESSION [None]
  - HYPERHIDROSIS [None]
  - HYPOCALCAEMIA [None]
  - MYOCARDIAL INFARCTION [None]
